FAERS Safety Report 11158174 (Version 2)
Quarter: 2015Q3

REPORT INFORMATION
  Report Type: Spontaneous
  Country: JP (occurrence: JP)
  Receive Date: 20150603
  Receipt Date: 20150804
  Transmission Date: 20151125
  Serious: Yes (Other)
  Sender: FDA-Public Use
  Company Number: JP-MYLANLABS-2015M1016976

PATIENT

DRUGS (5)
  1. CORTICOSTEROIDS [Suspect]
     Active Substance: CORTICOSTEROID NOS
     Indication: LUPUS ENTERITIS
     Route: 041
  2. MYCOPHENOLATE MOFETIL CAPSULES 250MG [PFIZER] [Suspect]
     Active Substance: MYCOPHENOLATE MOFETIL
     Indication: LUPUS ENTERITIS
     Route: 048
  3. PREDONINE [Suspect]
     Active Substance: PREDNISOLONE\PREDNISOLONE ACETATE\PREDNISOLONE SODIUM SUCCINATE
     Indication: SYSTEMIC LUPUS ERYTHEMATOSUS
     Route: 048
  4. CICLOSPORIN CAPSULES 10 MG ^MYLAN^ [Suspect]
     Active Substance: CYCLOSPORINE
     Indication: LUPUS ENTERITIS
     Route: 048
  5. ENDOXAN                            /00021101/ [Suspect]
     Active Substance: CYCLOPHOSPHAMIDE
     Indication: LUPUS ENTERITIS
     Route: 042

REACTIONS (2)
  - Protein-losing gastroenteropathy [Recovering/Resolving]
  - Cytomegalovirus enterocolitis [Recovering/Resolving]
